FAERS Safety Report 9866454 (Version 1)
Quarter: 2014Q1

REPORT INFORMATION
  Report Type: Spontaneous
  Country: GB (occurrence: GB)
  Receive Date: 20140204
  Receipt Date: 20140204
  Transmission Date: 20141002
  Serious: Yes (Other)
  Sender: FDA-Public Use
  Company Number: GB-ROCHE-1343541

PATIENT
  Age: 76 Year
  Sex: Male

DRUGS (2)
  1. MABTHERA [Suspect]
     Indication: B-CELL LYMPHOMA
     Route: 065
  2. CHLORAMBUCIL [Concomitant]
     Indication: B-CELL LYMPHOMA

REACTIONS (1)
  - Myocardial infarction [Unknown]
